FAERS Safety Report 12504901 (Version 2)
Quarter: 2016Q3

REPORT INFORMATION
  Report Type: Spontaneous
  Country: US (occurrence: US)
  Receive Date: 20160628
  Receipt Date: 20160823
  Transmission Date: 20161109
  Serious: Yes (Other)
  Sender: FDA-Public Use
  Company Number: US-BAYER-2016-125308

PATIENT
  Age: 37 Year
  Sex: Female
  Weight: 60.32 kg

DRUGS (5)
  1. CYTOTEC [Concomitant]
     Active Substance: MISOPROSTOL
     Dosage: UNK
     Dates: start: 20160718
  2. MIRENA [Suspect]
     Active Substance: LEVONORGESTREL
     Indication: DYSMENORRHOEA
  3. MIRENA [Suspect]
     Active Substance: LEVONORGESTREL
     Indication: MENORRHAGIA
  4. ERRIN [Concomitant]
     Active Substance: NORETHINDRONE
     Dosage: UNK
     Dates: start: 20160624
  5. MIRENA [Suspect]
     Active Substance: LEVONORGESTREL
     Indication: CONTRACEPTION
     Dosage: 20 MCG/24HR, CONT
     Route: 015
     Dates: start: 20160520, end: 20160622

REACTIONS (13)
  - Ovarian cyst [None]
  - Uterine enlargement [None]
  - Device issue [None]
  - Device dislocation [None]
  - Nausea [None]
  - Post procedural haemorrhage [None]
  - Procedural pain [None]
  - Device dislocation [None]
  - Abdominal pain lower [None]
  - Abdominal pain lower [None]
  - Dysmenorrhoea [None]
  - Pain [None]
  - Suprapubic pain [None]

NARRATIVE: CASE EVENT DATE: 2016
